FAERS Safety Report 11322564 (Version 1)
Quarter: 2015Q3

REPORT INFORMATION
  Report Type: Spontaneous
  Country: US (occurrence: None)
  Receive Date: 20150729
  Receipt Date: 20150729
  Transmission Date: 20151125
  Serious: Yes (Other)
  Sender: FDA-Public Use
  Company Number: None

PATIENT
  Age: 64 Year
  Sex: Male
  Weight: 108.86 kg

DRUGS (9)
  1. METFORMIN [Concomitant]
     Active Substance: METFORMIN HYDROCHLORIDE
  2. OXYCODONE AND ACETAMINOPHEN [Suspect]
     Active Substance: ACETAMINOPHEN\OXYCODONE\OXYCODONE HYDROCHLORIDE
     Indication: ARTHRALGIA
     Dosage: 5-325MG?60?1-2 TABLETS EVERY 4-6 HOURS ?BY MOUTH
     Route: 048
     Dates: start: 20150625, end: 20150627
  3. GARLIC. [Concomitant]
     Active Substance: GARLIC
  4. OXYCODONE AND ACETAMINOPHEN [Suspect]
     Active Substance: ACETAMINOPHEN\OXYCODONE\OXYCODONE HYDROCHLORIDE
     Indication: BACK PAIN
     Dosage: 5-325MG?60?1-2 TABLETS EVERY 4-6 HOURS ?BY MOUTH
     Route: 048
     Dates: start: 20150625, end: 20150627
  5. PROSTATE FORMULA [Concomitant]
  6. ZOCOR [Concomitant]
     Active Substance: SIMVASTATIN
  7. ALLOPURINOL. [Concomitant]
     Active Substance: ALLOPURINOL
  8. GLUECOSAMINE CHONDROIDON [Concomitant]
  9. FLAXSEED [Concomitant]
     Active Substance: FLAX SEED

REACTIONS (4)
  - Drug ineffective [None]
  - Product substitution issue [None]
  - Product formulation issue [None]
  - Product quality issue [None]

NARRATIVE: CASE EVENT DATE: 20150625
